FAERS Safety Report 17970704 (Version 1)
Quarter: 2020Q3

REPORT INFORMATION
  Report Type: Spontaneous
  Country: CN (occurrence: CN)
  Receive Date: 20200701
  Receipt Date: 20200701
  Transmission Date: 20201103
  Serious: Yes (Hospitalization)
  Sender: FDA-Public Use
  Company Number: CN-EISAI MEDICAL RESEARCH-EC-2020-076580

PATIENT
  Age: 83 Year
  Sex: Male
  Weight: 45 kg

DRUGS (1)
  1. LENVIMA [Suspect]
     Active Substance: LENVATINIB
     Indication: HEPATIC CANCER
     Route: 048
     Dates: start: 20200618, end: 20200622

REACTIONS (6)
  - Urinary incontinence [Recovering/Resolving]
  - Cardiac failure [Recovering/Resolving]
  - Depressed level of consciousness [Recovering/Resolving]
  - Anal incontinence [Recovering/Resolving]
  - Atrial fibrillation [Recovering/Resolving]
  - Hypertension [Recovering/Resolving]

NARRATIVE: CASE EVENT DATE: 20200620
